FAERS Safety Report 9168268 (Version 3)
Quarter: 2013Q2

REPORT INFORMATION
  Report Type: Report from Study
  Country: US (occurrence: US)
  Receive Date: 20130318
  Receipt Date: 20130606
  Transmission Date: 20140414
  Serious: Yes (Death, Hospitalization, Other)
  Sender: FDA-Public Use
  Company Number: PHEH2013US006066

PATIENT
  Age: 32 Year
  Sex: Female

DRUGS (1)
  1. GLEEVEC [Suspect]
     Indication: PARAGANGLION NEOPLASM MALIGNANT
     Dosage: 400 MG, QD
     Route: 048

REACTIONS (9)
  - Paraganglion neoplasm malignant [Fatal]
  - Hypoaesthesia [Fatal]
  - Malignant neoplasm progression [Fatal]
  - Spinal cord compression [Unknown]
  - Pain in extremity [Unknown]
  - Muscular weakness [Unknown]
  - Metastases to bone [Unknown]
  - Metastases to spine [Unknown]
  - Spinal column stenosis [Unknown]
